FAERS Safety Report 4478416-7 (Version None)
Quarter: 2004Q4

REPORT INFORMATION
  Report Type: 
  Country: None (occurrence: None)
  Receive Date: 20041018
  Receipt Date: 20041018
  Transmission Date: 20050328
  Serious: Yes (Hospitalization, Disabling, Other)
  Sender: FDA-Public Use
  Company Number: None

PATIENT
  Age: 49 Year
  Sex: Female
  Weight: 151.0478 kg

DRUGS (12)
  1. LEVAQUIN [Suspect]
     Indication: CELLULITIS
     Dosage: 500 MG TABLET
     Route: 048
     Dates: start: 20021031
  2. KLONOPIN [Concomitant]
  3. XANAX [Concomitant]
  4. LESCOL XL [Concomitant]
  5. TIZANIDINE HCL [Concomitant]
  6. SYNTHROID [Concomitant]
  7. NEFAZONE [Concomitant]
  8. AMBIEN [Concomitant]
  9. METHYALPREDNISONE [Concomitant]
  10. ACETAMINOPHEN W/ CODEINE [Concomitant]
  11. HYDROCHLOROTHIAZIDE [Concomitant]
  12. LEVAQUIN [Concomitant]

REACTIONS (12)
  - CONVULSION [None]
  - FALL [None]
  - GRAND MAL CONVULSION [None]
  - HAEMORRHAGE [None]
  - HYPOVENTILATION [None]
  - LOSS OF CONSCIOUSNESS [None]
  - MOUTH HAEMORRHAGE [None]
  - MOVEMENT DISORDER [None]
  - RESPIRATORY RATE INCREASED [None]
  - SOMNOLENCE [None]
  - TREMOR [None]
  - UPPER LIMB FRACTURE [None]
